FAERS Safety Report 7156873-5 (Version None)
Quarter: 2010Q4

REPORT INFORMATION
  Report Type: 
  Country: None (occurrence: None)
  Receive Date: 20101214
  Receipt Date: 20101208
  Transmission Date: 20110411
  Serious: Yes (Life-Threatening, Hospitalization)
  Sender: FDA-Public Use
  Company Number: FR-PFIZER INC-2010166912

PATIENT
  Age: 81 Year
  Sex: Male

DRUGS (8)
  1. ZYVOX [Suspect]
     Dosage: 600 MG, 2X/DAY
     Route: 048
     Dates: start: 20100801, end: 20100823
  2. RIFAMPICIN [Suspect]
     Dosage: UNK
     Dates: start: 20100726, end: 20100701
  3. VANCOMYCIN [Suspect]
     Dosage: UNK
     Route: 042
     Dates: start: 20100726, end: 20100701
  4. TAVANIC [Concomitant]
     Dosage: 1 DF, 2X/DAY
     Dates: start: 20100701, end: 20100823
  5. HYTACAND [Concomitant]
     Dosage: UNK
     Dates: end: 20100823
  6. PRAVASTATIN [Concomitant]
  7. PREVISCAN [Concomitant]
     Dosage: UNK
     Dates: end: 20100820
  8. TOPALGIC [Concomitant]

REACTIONS (4)
  - BONE MARROW FAILURE [None]
  - GASTRIC HAEMORRHAGE [None]
  - HEPATIC FAILURE [None]
  - RENAL FAILURE ACUTE [None]
